FAERS Safety Report 6456676-0 (Version None)
Quarter: 2009Q4

REPORT INFORMATION
  Report Type: 
  Country: None (occurrence: None)
  Receive Date: 20091125
  Receipt Date: 20090928
  Transmission Date: 20100525
  Serious: No
  Sender: FDA-Public Use
  Company Number: A0809832A

PATIENT
  Sex: Female

DRUGS (1)
  1. LANOXIN [Suspect]
     Dosage: .125MG UNKNOWN
     Route: 048

REACTIONS (2)
  - ADVERSE EVENT [None]
  - MALAISE [None]
